FAERS Safety Report 20475243 (Version 1)
Quarter: 2022Q1

REPORT INFORMATION
  Report Type: Spontaneous
  Country: US (occurrence: None)
  Receive Date: 20220214
  Receipt Date: 20220214
  Transmission Date: 20220423
  Serious: Yes (Other)
  Sender: FDA-Public Use
  Company Number: None

PATIENT
  Age: 97 Year
  Sex: Female
  Weight: 49.5 kg

DRUGS (4)
  1. PAXLOVID [Suspect]
     Active Substance: NIRMATRELVIR\RITONAVIR
     Indication: COVID-19
     Dosage: FREQUENCY : TWICE A DAY;?
     Dates: start: 20220208, end: 20220208
  2. METOPROLOL SUCCINATE [Concomitant]
     Active Substance: METOPROLOL SUCCINATE
  3. ACETAMINOPHEN [Concomitant]
     Active Substance: ACETAMINOPHEN
  4. Lidocaine 2% solution [Concomitant]

REACTIONS (10)
  - Sensory disturbance [None]
  - Heart rate irregular [None]
  - Cardiac flutter [None]
  - Dizziness [None]
  - Dyspnoea [None]
  - Tremor [None]
  - Abdominal pain [None]
  - Pain in extremity [None]
  - Gait disturbance [None]
  - Discomfort [None]

NARRATIVE: CASE EVENT DATE: 20220208
